FAERS Safety Report 6811515-0 (Version None)
Quarter: 2010Q2

REPORT INFORMATION
  Report Type: 
  Country: None (occurrence: None)
  Receive Date: 20100625
  Receipt Date: 20100621
  Transmission Date: 20101027
  Serious: Yes (Life-Threatening, Hospitalization)
  Sender: FDA-Public Use
  Company Number: WAES1005USA03082

PATIENT
  Age: 76 Year
  Sex: Male
  Weight: 54.8852 kg

DRUGS (10)
  1. CAP VORINOSTAT UNK [Suspect]
     Indication: MULTIPLE MYELOMA
     Dosage: 400 MG/DAILY/PO
     Route: 048
     Dates: start: 20100405, end: 20100411
  2. CAP VORINOSTAT UNK [Suspect]
     Indication: MULTIPLE MYELOMA
     Dosage: 400 MG/DAILY/PO
     Route: 048
     Dates: start: 20100508, end: 20100513
  3. INJ BORTEZOMIB UNK [Suspect]
     Indication: MULTIPLE MYELOMA
     Dosage: 2.07 MG/DAILY/IV, 1.6 MG/DAILY/IV
     Route: 042
     Dates: start: 20100405, end: 20100405
  4. INJ BORTEZOMIB UNK [Suspect]
     Indication: MULTIPLE MYELOMA
     Dosage: 2.07 MG/DAILY/IV, 1.6 MG/DAILY/IV
     Route: 042
     Dates: start: 20100408, end: 20100408
  5. INJ BORTEZOMIB UNK [Suspect]
     Indication: MULTIPLE MYELOMA
     Dosage: 2.07 MG/DAILY/IV, 1.6 MG/DAILY/IV
     Route: 042
     Dates: start: 20100508, end: 20100508
  6. INJ BORTEZOMIB UNK [Suspect]
     Indication: MULTIPLE MYELOMA
     Dosage: 2.07 MG/DAILY/IV, 1.6 MG/DAILY/IV
     Route: 042
     Dates: start: 20100511, end: 20100511
  7. ARTIST [Concomitant]
  8. COZAAR [Concomitant]
  9. HYPOCA [Concomitant]
  10. MEVALOTIN [Concomitant]

REACTIONS (15)
  - ANAEMIA [None]
  - DECREASED APPETITE [None]
  - DEHYDRATION [None]
  - DEPRESSED LEVEL OF CONSCIOUSNESS [None]
  - DISSEMINATED INTRAVASCULAR COAGULATION [None]
  - FATIGUE [None]
  - GASTROINTESTINAL TOXICITY [None]
  - LYMPHOPENIA [None]
  - MUSCULAR WEAKNESS [None]
  - OSTEOPOROSIS [None]
  - PLEURAL EFFUSION [None]
  - PYELONEPHRITIS [None]
  - PYREXIA [None]
  - SEPSIS [None]
  - THROMBOCYTOPENIA [None]
